FAERS Safety Report 10982682 (Version 1)
Quarter: 2015Q1

REPORT INFORMATION
  Report Type: Spontaneous
  Country: US (occurrence: None)
  Receive Date: 20150302
  Receipt Date: 20150302
  Transmission Date: 20150721
  Serious: Yes (Other)
  Sender: FDA-Public Use
  Company Number: M2014-009B

PATIENT
  Age: 11 Year
  Sex: Female

DRUGS (3)
  1. CANDIDA ALBICANS. [Suspect]
     Active Substance: CANDIDA ALBICANS
     Indication: OFF LABEL USE
     Dosage: 0.2CC/INJECTION
     Dates: start: 20140630
  2. NORMAL SALINE [Suspect]
     Active Substance: SODIUM CHLORIDE
     Dosage: 0.2CC/INJECTION
     Dates: start: 20140630
  3. CANDIDA ALBICANS. [Suspect]
     Active Substance: CANDIDA ALBICANS
     Indication: SKIN PAPILLOMA
     Dosage: 0.2CC/INJECTION
     Dates: start: 20140630

REACTIONS (4)
  - Vomiting [None]
  - Malaise [None]
  - Influenza like illness [None]
  - Headache [None]

NARRATIVE: CASE EVENT DATE: 20140729
